FAERS Safety Report 11782935 (Version 1)
Quarter: 2015Q4

REPORT INFORMATION
  Report Type: Spontaneous
  Country: US (occurrence: US)
  Receive Date: 20151127
  Receipt Date: 20151127
  Transmission Date: 20160305
  Serious: No
  Sender: FDA-Public Use
  Company Number: US-ASTRAZENECA-2015SF12274

PATIENT
  Sex: Female

DRUGS (1)
  1. PRILOSEC OTC [Suspect]
     Active Substance: OMEPRAZOLE MAGNESIUM
     Dosage: 1 TABLET, DAILY AT DIFFERENT TIMES DURING DAY
     Route: 048

REACTIONS (4)
  - Product use issue [Unknown]
  - Weight increased [Unknown]
  - Restless legs syndrome [Unknown]
  - Abdominal distension [Unknown]
